FAERS Safety Report 9994674 (Version 2)
Quarter: 2014Q2

REPORT INFORMATION
  Report Type: Report from Study
  Country: DE (occurrence: DE)
  Receive Date: 20140311
  Receipt Date: 20140512
  Transmission Date: 20141212
  Serious: Yes (Hospitalization)
  Sender: FDA-Public Use
  Company Number: DE-ROCHE-1359997

PATIENT
  Age: 78 Year
  Sex: Female
  Weight: 69.8 kg

DRUGS (4)
  1. BEVACIZUMAB [Suspect]
     Indication: OVARIAN CANCER
     Dosage: LAST DOSE PRIOR TO SAE ON 11/FEB/2014
     Route: 042
     Dates: start: 20130108
  2. CARBOPLATIN [Suspect]
     Indication: OVARIAN CANCER
     Dosage: LAST DOSE PRIOR TO SAE ON 03/APR/2013
     Route: 042
     Dates: start: 20121218
  3. PACLITAXEL [Suspect]
     Indication: OVARIAN CANCER
     Dosage: LAST DOSE PRIOR TO SAE ON 12/MAR/2013
     Route: 042
     Dates: start: 20121218
  4. ASS [Concomitant]
     Indication: CORONARY ARTERY DISEASE
     Dosage: LAST DOSE PRIOR TO SAE ON 26/FEB/2014
     Route: 048
     Dates: start: 20110101

REACTIONS (1)
  - Pelvic fracture [Recovered/Resolved]
